FAERS Safety Report 7820370-1 (Version None)
Quarter: 2011Q4

REPORT INFORMATION
  Report Type: 
  Country: None (occurrence: None)
  Receive Date: 20111013
  Receipt Date: 20110926
  Transmission Date: 20120403
  Serious: Yes (Other)
  Sender: FDA-Public Use
  Company Number: JPI-P-011086

PATIENT
  Age: 58 Year
  Sex: Female

DRUGS (21)
  1. CALCIUM CARBONATE [Concomitant]
  2. ESOMEPRAZOLE SODIUM [Concomitant]
  3. XYREM [Suspect]
  4. XYREM [Suspect]
     Indication: NARCOLEPSY
     Dosage: SEE IMAGE
     Route: 048
     Dates: start: 20100525, end: 20100527
  5. XYREM [Suspect]
     Indication: SLEEP APNOEA SYNDROME
     Dosage: SEE IMAGE
     Route: 048
     Dates: start: 20100525, end: 20100527
  6. XYREM [Suspect]
     Indication: NARCOLEPSY
     Dosage: SEE IMAGE
     Route: 048
     Dates: start: 20100413, end: 20100101
  7. XYREM [Suspect]
     Indication: SLEEP APNOEA SYNDROME
     Dosage: SEE IMAGE
     Route: 048
     Dates: start: 20100413, end: 20100101
  8. XYREM [Suspect]
     Indication: NARCOLEPSY
     Dosage: SEE IMAGE
     Route: 048
     Dates: start: 20100530
  9. XYREM [Suspect]
     Indication: SLEEP APNOEA SYNDROME
     Dosage: SEE IMAGE
     Route: 048
     Dates: start: 20100530
  10. XYREM [Suspect]
     Indication: NARCOLEPSY
     Dosage: SEE IMAGE
     Route: 048
     Dates: start: 20100101, end: 20100524
  11. XYREM [Suspect]
     Indication: SLEEP APNOEA SYNDROME
     Dosage: SEE IMAGE
     Route: 048
     Dates: start: 20100101, end: 20100524
  12. XYREM [Suspect]
     Indication: NARCOLEPSY
     Dosage: SEE IMAGE
     Route: 048
     Dates: start: 20100528, end: 20100528
  13. XYREM [Suspect]
     Indication: SLEEP APNOEA SYNDROME
     Dosage: SEE IMAGE
     Route: 048
     Dates: start: 20100528, end: 20100528
  14. XYREM [Suspect]
     Indication: NARCOLEPSY
     Dosage: SEE IMAGE
     Route: 048
     Dates: start: 20100529, end: 20100529
  15. XYREM [Suspect]
     Indication: SLEEP APNOEA SYNDROME
     Dosage: SEE IMAGE
     Route: 048
     Dates: start: 20100529, end: 20100529
  16. ACYCLOVIR [Concomitant]
  17. MODAFINIL [Concomitant]
  18. ARMODAFINIL [Concomitant]
  19. MAGNESIUM [Concomitant]
  20. LOVAZA [Concomitant]
  21. FLAXSEED OIL [Concomitant]

REACTIONS (19)
  - TOOTH DISORDER [None]
  - GASTROOESOPHAGEAL REFLUX DISEASE [None]
  - MOANING [None]
  - NAUSEA [None]
  - CHEST PAIN [None]
  - HIATUS HERNIA [None]
  - HEPATOMEGALY [None]
  - BLADDER PAIN [None]
  - BLOOD PRESSURE INCREASED [None]
  - PHARYNGEAL OEDEMA [None]
  - NON-HODGKIN'S LYMPHOMA RECURRENT [None]
  - DIZZINESS [None]
  - FACIAL PAIN [None]
  - HYPERHIDROSIS [None]
  - SWELLING FACE [None]
  - GASTROINTESTINAL INFLAMMATION [None]
  - ABDOMINAL PAIN UPPER [None]
  - WEIGHT DECREASED [None]
  - OESOPHAGEAL DISORDER [None]
